FAERS Safety Report 22938592 (Version 2)
Quarter: 2023Q4

REPORT INFORMATION
  Report Type: Report from Study
  Country: CO (occurrence: CO)
  Receive Date: 20230913
  Receipt Date: 20231017
  Transmission Date: 20240109
  Serious: Yes (Hospitalization)
  Sender: FDA-Public Use
  Company Number: CO-IPSEN Group, Research and Development-2023-18105

PATIENT
  Age: 70 Year
  Sex: Male
  Weight: 80 kg

DRUGS (8)
  1. LANREOTIDE ACETATE [Suspect]
     Active Substance: LANREOTIDE ACETATE
     Indication: Neuroendocrine tumour
     Dosage: 120 MG, 1 UNIT EVERY 30 HOURS
     Route: 058
     Dates: start: 20190329
  2. LOSARTAN [Concomitant]
     Active Substance: LOSARTAN
     Indication: Hypertension
     Dosage: 1 TABLET EVERY 12 HOURS, STARTED 10 YEARS AGO
     Route: 048
     Dates: start: 2013
  3. ASPIRIN [Concomitant]
     Active Substance: ASPIRIN
     Dosage: 100 MG, 1 TABLET EVERY 24 HOURS
     Route: 048
     Dates: start: 2015
  4. PREGABALIN [Concomitant]
     Active Substance: PREGABALIN
     Indication: Arthralgia
     Dosage: ANTICONVULSANT; 75 MG TABLET
     Route: 048
     Dates: start: 2016
  5. ACETAMINOFEN+HIDROCODONA [Concomitant]
     Indication: Pain
     Dosage: 1 TABLET EVERY 8 HOURS, 5MG/325 MG
     Route: 048
     Dates: start: 2016
  6. PHENYTOIN [Concomitant]
     Active Substance: PHENYTOIN
     Dosage: ANTICONVULSANT; 100 MG,3 AT NIGHT
     Route: 048
     Dates: start: 2007
  7. TRASADONA [Concomitant]
     Indication: Sleep disorder
     Dosage: 50 MG, 1 TABLET EVERY 24 HOURS
     Route: 048
     Dates: start: 2013
  8. EMPAGLIFLOZIN [Concomitant]
     Active Substance: EMPAGLIFLOZIN
     Indication: Diabetes mellitus
     Route: 048
     Dates: start: 2013

REACTIONS (7)
  - Gait disturbance [Not Recovered/Not Resolved]
  - Diarrhoea [Not Recovered/Not Resolved]
  - Neoplasm progression [Not Recovered/Not Resolved]
  - Headache [Not Recovered/Not Resolved]
  - Discomfort [Not Recovered/Not Resolved]
  - Diarrhoea [Not Recovered/Not Resolved]
  - Drug ineffective [Unknown]

NARRATIVE: CASE EVENT DATE: 20190329
